FAERS Safety Report 6387198-3 (Version None)
Quarter: 2009Q4

REPORT INFORMATION
  Report Type: 
  Country: None (occurrence: None)
  Receive Date: 20091002
  Receipt Date: 20090918
  Transmission Date: 20100525
  Serious: Yes (Other)
  Sender: FDA-Public Use
  Company Number: CA-GENENTECH-249093

PATIENT
  Sex: Female
  Weight: 61 kg

DRUGS (1)
  1. OMALIZUMAB [Suspect]
     Indication: ASTHMA
     Dosage: 150 MG, Q4W
     Route: 058
     Dates: start: 20070118

REACTIONS (3)
  - ANXIETY [None]
  - ASTHMA [None]
  - DRUG INEFFECTIVE [None]
